FAERS Safety Report 8947355 (Version 4)
Quarter: 2013Q1

REPORT INFORMATION
  Report Type: Spontaneous
  Country: JP (occurrence: JP)
  Receive Date: 20121205
  Receipt Date: 20130311
  Transmission Date: 20140127
  Serious: Yes (Life-Threatening, Hospitalization)
  Sender: FDA-Public Use
  Company Number: JP-JNJFOC-20121200184

PATIENT
  Age: 70 Year
  Sex: Female
  Weight: 50 kg

DRUGS (7)
  1. RISPERDAL CONSTA [Suspect]
     Indication: DELUSION
     Route: 030
     Dates: start: 20121025
  2. MIRADOL [Suspect]
     Indication: PRODUCT USED FOR UNKNOWN INDICATION
     Route: 048
  3. CONSTAN [Suspect]
     Indication: PRODUCT USED FOR UNKNOWN INDICATION
     Route: 048
  4. DEPAS [Suspect]
     Indication: PRODUCT USED FOR UNKNOWN INDICATION
     Route: 048
  5. LACTOMIN [Concomitant]
     Indication: CONSTIPATION
     Route: 048
     Dates: start: 20121012, end: 20121107
  6. MIYA-BM [Concomitant]
     Indication: CONSTIPATION
     Route: 048
     Dates: start: 20121012, end: 20121107
  7. ALOSENN [Concomitant]
     Indication: CONSTIPATION
     Route: 048
     Dates: start: 20121012, end: 20121107

REACTIONS (4)
  - Interstitial lung disease [Unknown]
  - Loss of consciousness [Not Recovered/Not Resolved]
  - Status epilepticus [Not Recovered/Not Resolved]
  - Encephalitis [Recovered/Resolved with Sequelae]
